FAERS Safety Report 15125809 (Version 2)
Quarter: 2019Q1

REPORT INFORMATION
  Report Type: Spontaneous
  Country: NL (occurrence: NL)
  Receive Date: 20180710
  Receipt Date: 20190314
  Transmission Date: 20190417
  Serious: Yes (Hospitalization)
  Sender: FDA-Public Use
  Company Number: NL-PFIZER INC-2018272965

PATIENT

DRUGS (5)
  1. IRINOTECAN HCL [Suspect]
     Active Substance: IRINOTECAN HYDROCHLORIDE
     Indication: COLORECTAL CANCER
     Dosage: ON 07MAR2018, RECEIVED IRINOTECAN. DATE OF MOST RECENT DOSE PRIOR TO AE ONSET: 02MAY2018
     Dates: start: 20180125
  2. OXALIPLATIN. [Suspect]
     Active Substance: OXALIPLATIN
     Indication: COLORECTAL CANCER
     Dosage: ON 07MAR2018, RECEIVED OXALIPLATIN. DATE OF MOST RECENT DOSE PRIOR TO AE ONSET: 02MAY2018
     Route: 065
     Dates: start: 20180125
  3. BEVACIZUMAB. [Suspect]
     Active Substance: BEVACIZUMAB
     Indication: COLORECTAL CANCER
     Dosage: ON 07MAR2018, RECEIVED BEVACIZUMAB. DATE OF MOST RECENT DOSE PRIOR TO AE ONSET: 02MAY2018
     Route: 065
     Dates: start: 20180125
  4. 5-FU [FLUOROURACIL] [Suspect]
     Active Substance: FLUOROURACIL
     Indication: COLORECTAL CANCER
     Dosage: ON 07MAR2018, RECEIVED 5-FLUOROURACIL. DATE OF MOST RECENT DOSE PRIOR TO AE ONSET: 02MAY2018
     Route: 065
     Dates: start: 20180125
  5. LEUCOVORIN [FOLINIC ACID] [Suspect]
     Active Substance: LEUCOVORIN
     Indication: COLORECTAL CANCER
     Dosage: ON 07MAR2018, RECEIVED LEUCOVORIN. DATE OF MOST RECENT DOSE PRIOR TO AE ONSET: 02MAY2018
     Dates: start: 20180125

REACTIONS (2)
  - Post procedural fever [Recovered/Resolved]
  - Pulmonary embolism [Recovering/Resolving]

NARRATIVE: CASE EVENT DATE: 20180314
